FAERS Safety Report 16940095 (Version 1)
Quarter: 2019Q4

REPORT INFORMATION
  Report Type: Spontaneous
  Country: US (occurrence: US)
  Receive Date: 20190828
  Receipt Date: 20190828
  Transmission Date: 20200122
  Serious: No
  Sender: FDA-Public Use
  Company Number: None

PATIENT
  Age: 32 Year
  Sex: Male

DRUGS (1)
  1. STELARA [Suspect]
     Active Substance: USTEKINUMAB
     Route: 041
     Dates: start: 201908

REACTIONS (2)
  - Nasopharyngitis [None]
  - Infusion related reaction [None]

NARRATIVE: CASE EVENT DATE: 20190806
